FAERS Safety Report 8709068 (Version 2)
Quarter: 2023Q2

REPORT INFORMATION
  Report Type: Other
  Country: US (occurrence: None)
  Receive Date: 20120806
  Receipt Date: 20230425
  Transmission Date: 20230722
  Serious: Yes (Death, Other)
  Sender: FDA-Public Use
  Company Number: US-ROCHE-487384

PATIENT

DRUGS (3)
  1. INTERFERON ALFA-2A [Suspect]
     Active Substance: INTERFERON ALFA-2A
     Indication: Metastatic renal cell carcinoma
     Dosage: GIVEN ON NONCONSECUTIVE DAYS, 3 MU AT THREE TIMES A WEEK DURING THE FIRST WEEK.
     Route: 058
  2. INTERFERON ALFA-2A [Suspect]
     Active Substance: INTERFERON ALFA-2A
     Dosage: GIVEN 6 MU THREE TIMES A WEEK DURING SECOND WEEK.
     Route: 058
  3. INTERFERON ALFA-2A [Suspect]
     Active Substance: INTERFERON ALFA-2A
     Dosage: GIVEN 9 MU THREE TIMES A WEEK THEREAFTER.
     Route: 058

REACTIONS (40)
  - Myocardial infarction [Fatal]
  - Cerebral haemorrhage [Fatal]
  - Respiratory failure [Fatal]
  - Intracranial tumour haemorrhage [Fatal]
  - Malignant neoplasm progression [Fatal]
  - Fatigue [Unknown]
  - Nausea [Unknown]
  - Stomatitis [Unknown]
  - Vomiting [Unknown]
  - Hypertension [Unknown]
  - Mucosal inflammation [Unknown]
  - Rash [Unknown]
  - Asthenia [Unknown]
  - Dry mouth [Unknown]
  - Ejection fraction decreased [Unknown]
  - Myalgia [Unknown]
  - Influenza like illness [Unknown]
  - Leukopenia [Unknown]
  - Neutropenia [Unknown]
  - Anaemia [Unknown]
  - Blood creatinine increased [Unknown]
  - Lymphopenia [Unknown]
  - Lipase increased [Unknown]
  - Aspartate aminotransferase increased [Unknown]
  - Alanine aminotransferase increased [Unknown]
  - Blood alkaline phosphatase increased [Unknown]
  - Blood uric acid increased [Unknown]
  - Hypophosphataemia [Unknown]
  - Amylase increased [Unknown]
  - Diarrhoea [Unknown]
  - Decreased appetite [Unknown]
  - Dyspepsia [Unknown]
  - Palmar-plantar erythrodysaesthesia syndrome [Unknown]
  - Hypothyroidism [Unknown]
  - Weight decreased [Unknown]
  - Arthralgia [Unknown]
  - Dyspnoea [Unknown]
  - Pyrexia [Unknown]
  - Thrombocytopenia [Unknown]
  - Blood creatine phosphokinase increased [Unknown]
